FAERS Safety Report 24146921 (Version 1)
Quarter: 2024Q3

REPORT INFORMATION
  Report Type: Spontaneous
  Country: PT (occurrence: PT)
  Receive Date: 20240729
  Receipt Date: 20240729
  Transmission Date: 20241016
  Serious: Yes (Other)
  Sender: PFIZER
  Company Number: PT-009507513-2407PRT010556

PATIENT
  Age: 57 Year
  Sex: Male

DRUGS (2)
  1. AXITINIB [Suspect]
     Active Substance: AXITINIB
     Dosage: UNK
  2. PEMBROLIZUMAB [Suspect]
     Active Substance: PEMBROLIZUMAB
     Indication: Metastatic renal cell carcinoma
     Dosage: UNK

REACTIONS (5)
  - Rheumatoid arthritis [Unknown]
  - Cholestasis [Unknown]
  - Hyponatraemia [Unknown]
  - Cell death [Unknown]
  - Neoplasm progression [Unknown]
